FAERS Safety Report 5625168-0 (Version None)
Quarter: 2008Q1

REPORT INFORMATION
  Report Type: 
  Country: None (occurrence: None)
  Receive Date: 20080213
  Receipt Date: 20080201
  Transmission Date: 20080703
  Serious: Yes (Other)
  Sender: FDA-Public Use
  Company Number: US-PFIZER INC-2008013022

PATIENT
  Sex: Female
  Weight: 58.1 kg

DRUGS (9)
  1. CHANTIX [Suspect]
     Indication: SMOKING CESSATION THERAPY
  2. LITHIUM CARBONATE [Concomitant]
     Indication: MENTAL DISORDER
  3. DOXEPIN HCL [Concomitant]
     Indication: MENTAL DISORDER
  4. VALIUM [Concomitant]
     Indication: MENTAL DISORDER
  5. ANTIDEPRESSANTS [Concomitant]
     Indication: BIPOLAR I DISORDER
  6. ANTIHYPERTENSIVES [Concomitant]
     Indication: HYPERTENSION
  7. THYROID TAB [Concomitant]
     Indication: THYROID DISORDER
  8. CARDIAC THERAPY [Concomitant]
     Indication: CARDIAC DISORDER
  9. ALL OTHER THERAPEUTIC PRODUCTS [Concomitant]
     Route: 055

REACTIONS (2)
  - DEPRESSION [None]
  - HYPERSOMNIA [None]
